FAERS Safety Report 25383744 (Version 1)
Quarter: 2025Q2

REPORT INFORMATION
  Report Type: Spontaneous
  Country: CN (occurrence: CN)
  Receive Date: 20250602
  Receipt Date: 20250602
  Transmission Date: 20250717
  Serious: Yes (Other)
  Sender: BAXTER
  Company Number: None

PATIENT
  Age: 6 Year
  Sex: Male
  Weight: 20.5 kg

DRUGS (10)
  1. IFOSFAMIDE [Suspect]
     Active Substance: IFOSFAMIDE
     Indication: Acute lymphocytic leukaemia
     Dosage: 0.64 G, BID, Q12H, INTRAVENOUS PUMP
     Route: 041
     Dates: start: 20250517, end: 20250519
  2. DEXAMETHASONE SODIUM PHOSPHATE [Suspect]
     Active Substance: DEXAMETHASONE SODIUM PHOSPHATE
     Indication: Acute lymphocytic leukaemia
     Dosage: 8 MG, BID
     Route: 041
     Dates: start: 20250516, end: 20250520
  3. CEFOPERAZONE SODIUM\SULBACTAM SODIUM [Suspect]
     Active Substance: CEFOPERAZONE SODIUM\SULBACTAM SODIUM
     Indication: Haematological infection
     Dosage: 1 G, TID, Q8H
     Route: 041
     Dates: start: 20250512, end: 20250515
  4. VINDESINE SULFATE [Suspect]
     Active Substance: VINDESINE SULFATE
     Indication: Acute lymphocytic leukaemia
     Dosage: 2.4 MG, QD, INTRAVENOUS PUSH
     Route: 042
     Dates: start: 20250516, end: 20250516
  5. METHOTREXATE [Suspect]
     Active Substance: METHOTREXATE
     Indication: Acute lymphocytic leukaemia
     Dosage: 4 G, QD, 84ML, INTRAVENOUS PUMP
     Route: 041
     Dates: start: 20250516, end: 20250517
  6. SODIUM CHLORIDE [Suspect]
     Active Substance: SODIUM CHLORIDE
     Indication: Medication dilution
     Dosage: 100 ML, TID
     Route: 041
     Dates: start: 20250512, end: 20250515
  7. SODIUM CHLORIDE [Suspect]
     Active Substance: SODIUM CHLORIDE
     Dosage: 3 ML, QD
     Route: 042
     Dates: start: 20250516, end: 20250516
  8. SODIUM CHLORIDE [Suspect]
     Active Substance: SODIUM CHLORIDE
     Dosage: 84 ML, QD
     Route: 041
     Dates: start: 20250516, end: 20250517
  9. SODIUM CHLORIDE [Suspect]
     Active Substance: SODIUM CHLORIDE
     Dosage: 250 ML, BID
     Route: 041
     Dates: start: 20250517, end: 20250519
  10. DEXTROSE [Suspect]
     Active Substance: DEXTROSE MONOHYDRATE
     Indication: Medication dilution
     Dosage: 100 ML, BID
     Route: 041
     Dates: start: 20250516, end: 20250520

REACTIONS (3)
  - Liver injury [Recovering/Resolving]
  - Condition aggravated [Recovering/Resolving]
  - Hepatic function abnormal [Recovering/Resolving]

NARRATIVE: CASE EVENT DATE: 20250510
